FAERS Safety Report 6769512-X (Version None)
Quarter: 2010Q2

REPORT INFORMATION
  Report Type: 
  Country: None (occurrence: None)
  Receive Date: 20100615
  Receipt Date: 20100602
  Transmission Date: 20101027
  Serious: Yes (Hospitalization)
  Sender: FDA-Public Use
  Company Number: FR-SANOFI-AVENTIS-2010SA031450

PATIENT
  Age: 70 Year
  Sex: Male

DRUGS (13)
  1. LOVENOX [Suspect]
     Route: 058
     Dates: start: 20100420, end: 20100423
  2. BIPROFENID [Suspect]
     Route: 048
     Dates: start: 20100421, end: 20100423
  3. PREVISCAN [Concomitant]
     Route: 048
  4. KERLONE [Concomitant]
     Route: 048
  5. PRAZOSIN HCL [Concomitant]
     Route: 048
  6. HYPERIUM [Concomitant]
     Route: 048
  7. ISOPTIN [Concomitant]
     Route: 048
  8. ALDACTONE [Concomitant]
     Route: 048
  9. TAHOR [Concomitant]
     Route: 048
  10. STAGID [Concomitant]
     Route: 048
  11. ATACAND [Concomitant]
  12. TENSTATEN [Concomitant]
     Route: 048
  13. FERROUS SULFATE TAB [Concomitant]
     Route: 048
     Dates: start: 20100422, end: 20100423

REACTIONS (2)
  - GASTRIC ULCER [None]
  - GASTROINTESTINAL HAEMORRHAGE [None]
